FAERS Safety Report 25110021 (Version 1)
Quarter: 2025Q1

REPORT INFORMATION
  Report Type: Report from Study
  Country: GB (occurrence: GB)
  Receive Date: 20250324
  Receipt Date: 20250324
  Transmission Date: 20250408
  Serious: Yes (Other)
  Sender: UCB
  Company Number: GB-UCBSA-2025016290

PATIENT

DRUGS (3)
  1. LEVETIRACETAM [Suspect]
     Active Substance: LEVETIRACETAM
     Indication: Seizure prophylaxis
     Dosage: 250 MILLIGRAM, 2X/DAY (BID) (250 MG AM, 250 MG PM)
     Route: 048
  2. LEVETIRACETAM [Suspect]
     Active Substance: LEVETIRACETAM
     Indication: Off label use
     Dosage: 500 MILLIGRAM, 2X/DAY (BID) (500 MG AM, 500 MG PM)
     Route: 048
  3. LEVETIRACETAM [Suspect]
     Active Substance: LEVETIRACETAM
     Dosage: 750 MILLIGRAM, 2X/DAY (BID) (750 MG AM, 750 MG PM)
     Route: 048

REACTIONS (8)
  - Suicidal ideation [Unknown]
  - Seizure [Unknown]
  - Generalised tonic-clonic seizure [Unknown]
  - Depressive symptom [Unknown]
  - Somnolence [Unknown]
  - Mood altered [Unknown]
  - Depression [Unknown]
  - Off label use [Unknown]
